FAERS Safety Report 6727442-3 (Version None)
Quarter: 2010Q2

REPORT INFORMATION
  Report Type: 
  Country: None (occurrence: None)
  Receive Date: 20100517
  Receipt Date: 20100507
  Transmission Date: 20101027
  Serious: Yes (Other)
  Sender: FDA-Public Use
  Company Number: US-JNJFOC-20100305905

PATIENT
  Sex: Female

DRUGS (7)
  1. REMICADE [Suspect]
     Indication: CROHN'S DISEASE
     Route: 042
  2. REMICADE [Suspect]
     Route: 042
  3. REMICADE [Suspect]
     Indication: COLITIS ULCERATIVE
     Route: 042
  4. REMICADE [Suspect]
     Route: 042
  5. PREDNISONE [Suspect]
     Indication: COLITIS ULCERATIVE
  6. FLAGYL [Concomitant]
  7. ASACOL [Concomitant]
     Indication: COLITIS ULCERATIVE

REACTIONS (7)
  - CATARACT [None]
  - DRUG INEFFECTIVE [None]
  - FOOT FRACTURE [None]
  - HEADACHE [None]
  - PAIN IN JAW [None]
  - URTICARIA [None]
  - WHITE BLOOD CELL COUNT INCREASED [None]
